FAERS Safety Report 9291057 (Version 3)
Quarter: 2013Q4

REPORT INFORMATION
  Report Type: Spontaneous
  Country: FR (occurrence: FR)
  Receive Date: 20130515
  Receipt Date: 20131016
  Transmission Date: 20140711
  Serious: Yes (Hospitalization)
  Sender: FDA-Public Use
  Company Number: FR-009507513-1305FRA002243

PATIENT
  Age: 2 Year
  Sex: Female
  Weight: 11 kg

DRUGS (5)
  1. SINGULAIR 4MG COMPRIM? ? CROQUER [Suspect]
     Dosage: 4 MG, QD
     Route: 048
     Dates: start: 20130115, end: 201304
  2. VENTOLINE (ALBUTEROL) [Concomitant]
     Dosage: UNK, PRN
     Route: 055
     Dates: start: 201301, end: 201304
  3. DOLIPRANE [Concomitant]
     Dosage: 4 DF, PRN
     Route: 048
     Dates: start: 20130327, end: 201304
  4. CODENFAN [Concomitant]
     Dosage: 3 DF, PRN
     Route: 048
     Dates: start: 20130327, end: 20130401
  5. CLAMOXYL [Concomitant]
     Dosage: UNK
     Dates: start: 20130327

REACTIONS (2)
  - Post procedural haemorrhage [Recovered/Resolved]
  - Anaemia [Recovered/Resolved]
